FAERS Safety Report 8988979 (Version 1)
Quarter: 2012Q4

REPORT INFORMATION
  Report Type: Spontaneous
  Country: US (occurrence: None)
  Receive Date: 20121220
  Receipt Date: 20121220
  Transmission Date: 20130627
  Serious: Yes (Hospitalization)
  Sender: FDA-Public Use
  Company Number: 2012GMK004492

PATIENT
  Age: 26 Year
  Sex: Female

DRUGS (3)
  1. NORGESTIMATE AND ETHINYL ESTRADIOL [Suspect]
     Indication: CONTRACEPTION
     Route: 048
  2. CELEXA	/00582602/ (CITALOPRAM HYDROBROMIDE) [Concomitant]
  3. RELPAX (ELETRIPTAN HYDROBROMIDE) [Concomitant]

REACTIONS (4)
  - Unintended pregnancy [None]
  - Drug ineffective [None]
  - Pregnancy on oral contraceptive [None]
  - Maternal exposure during pregnancy [None]
